FAERS Safety Report 15189760 (Version 4)
Quarter: 2019Q4

REPORT INFORMATION
  Report Type: Spontaneous
  Country: US (occurrence: US)
  Receive Date: 20180724
  Receipt Date: 20191028
  Transmission Date: 20200122
  Serious: Yes (Other)
  Sender: FDA-Public Use
  Company Number: US-PFIZER INC-2018291603

PATIENT
  Age: 66 Year
  Sex: Female

DRUGS (1)
  1. CELONTIN [Suspect]
     Active Substance: METHSUXIMIDE
     Indication: SEIZURE
     Dosage: UNK

REACTIONS (4)
  - Abdominal discomfort [Unknown]
  - Drug dependence [Unknown]
  - Withdrawal syndrome [Unknown]
  - Histrionic personality disorder [Unknown]
